FAERS Safety Report 5474518-7 (Version None)
Quarter: 2007Q3

REPORT INFORMATION
  Report Type: 
  Country: None (occurrence: None)
  Receive Date: 20070928
  Receipt Date: 20070928
  Transmission Date: 20080115
  Serious: Yes (Hospitalization)
  Sender: FDA-Public Use
  Company Number: None

PATIENT
  Sex: Female
  Weight: 66.9 kg

DRUGS (4)
  1. CELEBREX [Suspect]
     Dosage: 18400 MG
  2. ACCUTANE [Suspect]
     Dosage: 2520 MG
  3. TEMOZOLOMIDE [Suspect]
     Dosage: 3500 MG
  4. THALIDOMIDE (THALIDOMID) [Suspect]
     Dosage: 2200 MG

REACTIONS (3)
  - OEDEMA PERIPHERAL [None]
  - PNEUMONIA [None]
  - PULMONARY EMBOLISM [None]
